FAERS Safety Report 10395716 (Version 1)
Quarter: 2014Q1

REPORT INFORMATION
  Report Type: Spontaneous
  Country: US (occurrence: None)
  Receive Date: 20130724
  Receipt Date: 20130724
  Transmission Date: 20141002
  Serious: Yes (Other)
  Sender: FDA-Public Use
  Company Number: PHEH2012US008481

PATIENT
  Age: 77 Year
  Sex: Female

DRUGS (3)
  1. GLEEVEC (IMATINIB) TABLET, 400MG [Suspect]
     Indication: CHRONIC MYELOID LEUKAEMIA
     Route: 048
     Dates: start: 20120406
  2. LISINOPRIL [Concomitant]
  3. NIASPAN (NICOTINIC ACID) [Concomitant]

REACTIONS (9)
  - White blood cell count decreased [None]
  - Pancytopenia [None]
  - Nocturia [None]
  - Weight increased [None]
  - Oedema peripheral [None]
  - Nausea [None]
  - Fatigue [None]
  - Decreased appetite [None]
  - Insomnia [None]
